FAERS Safety Report 24445288 (Version 1)
Quarter: 2024Q4

REPORT INFORMATION
  Report Type: Spontaneous
  Country: US (occurrence: None)
  Receive Date: 20241015
  Receipt Date: 20241015
  Transmission Date: 20250114
  Serious: Yes (Other)
  Sender: Public
  Company Number: None

PATIENT
  Sex: Female

DRUGS (1)
  1. SERTRALINE [Suspect]
     Active Substance: SERTRALINE HYDROCHLORIDE
     Indication: Anxiety
     Dates: start: 20170901, end: 20180131

REACTIONS (3)
  - Vestibular migraine [None]
  - Vestibular disorder [None]
  - Visual impairment [None]

NARRATIVE: CASE EVENT DATE: 20171001
